FAERS Safety Report 9413672 (Version 2)
Quarter: 2013Q3

REPORT INFORMATION
  Report Type: Spontaneous
  Country: US (occurrence: US)
  Receive Date: 20130722
  Receipt Date: 20130725
  Transmission Date: 20140515
  Serious: Yes (Hospitalization, Other)
  Sender: FDA-Public Use
  Company Number: US-BAXTER-2013BAX028030

PATIENT
  Age: 45 Year
  Sex: Male

DRUGS (4)
  1. DIANEAL LOW CALCIUM [Suspect]
     Indication: PERITONEAL DIALYSIS
     Route: 033
     Dates: start: 2009
  2. DIANEAL LOW CALCIUM [Suspect]
     Indication: PERITONEAL DIALYSIS
     Route: 033
     Dates: start: 2009
  3. VANCOMYCIN [Suspect]
     Indication: CELLULITIS
     Route: 042
     Dates: start: 20130627, end: 20130705
  4. GLIPIZIDE [Suspect]
     Indication: BLOOD GLUCOSE INCREASED
     Route: 048
     Dates: start: 20130627, end: 20130705

REACTIONS (8)
  - Type 2 diabetes mellitus [Not Recovered/Not Resolved]
  - Neuropathy peripheral [Not Recovered/Not Resolved]
  - Anaemia [Recovering/Resolving]
  - Gangrene [Recovering/Resolving]
  - Poor peripheral circulation [Recovering/Resolving]
  - Cellulitis [Recovering/Resolving]
  - Blood glucose increased [Recovering/Resolving]
  - Drug hypersensitivity [Recovering/Resolving]
